FAERS Safety Report 20712548 (Version 1)
Quarter: 2022Q2

REPORT INFORMATION
  Report Type: Spontaneous
  Country: NL (occurrence: NL)
  Receive Date: 20220415
  Receipt Date: 20220415
  Transmission Date: 20220721
  Serious: Yes (Other)
  Sender: FDA-Public Use
  Company Number: None

PATIENT
  Sex: Female
  Weight: 85 kg

DRUGS (2)
  1. OXYCODONE [Suspect]
     Active Substance: OXYCODONE
     Indication: Neuralgia
     Dosage: 3X2 PIECES,OXYCODON TABLET MGA 5MG / BRAND NAME NOT SPECIFIED, 10MG, FREQUENCY TIME 8HRS, THERAPY EN
     Route: 065
     Dates: start: 202202
  2. GABAPENTIN [Concomitant]
     Active Substance: GABAPENTIN
     Dosage: GABAPENTINE CAPSULE 300MG / BRAND NAME NOT SPECIFIED, THERAPY START DATE ASKU, THERAPY END DATE ASKU

REACTIONS (4)
  - Urinary retention [Not Recovered/Not Resolved]
  - Generalised oedema [Not Recovered/Not Resolved]
  - Arthralgia [Not Recovered/Not Resolved]
  - Oedema peripheral [Not Recovered/Not Resolved]
